FAERS Safety Report 6164236-4 (Version None)
Quarter: 2009Q2

REPORT INFORMATION
  Report Type: 
  Country: None (occurrence: None)
  Receive Date: 20090422
  Receipt Date: 20090414
  Transmission Date: 20091009
  Serious: No
  Sender: FDA-Public Use
  Company Number: US-B.I. PHARMACEUTICALS,INC./RIDGEFIELD-2009-BP-04771BP

PATIENT
  Age: 53 Year
  Sex: Female

DRUGS (7)
  1. SPIRIVA [Suspect]
     Indication: BRONCHITIS
     Dosage: 18MCG
     Route: 055
     Dates: start: 20081201
  2. SPIRIVA [Suspect]
     Indication: ASTHMA
  3. HYDROCHLOROTHIAZIDE [Concomitant]
     Indication: HYPERTENSION
     Dosage: 25MG
     Route: 048
     Dates: start: 20070101
  4. LISINOPRIL [Concomitant]
     Indication: HYPERTENSION
     Dosage: 20MG
     Route: 048
     Dates: start: 20070101
  5. ADVAIR HFA [Concomitant]
     Indication: BRONCHITIS
     Route: 055
     Dates: start: 20080101
  6. ADVAIR HFA [Concomitant]
     Indication: ASTHMA
  7. ALBUTEROL [Concomitant]
     Indication: ASTHMA
     Route: 055

REACTIONS (3)
  - EYE SWELLING [None]
  - HEADACHE [None]
  - NODULE [None]
